FAERS Safety Report 19159650 (Version 1)
Quarter: 2021Q2

REPORT INFORMATION
  Report Type: Spontaneous
  Country: AT (occurrence: AT)
  Receive Date: 20210420
  Receipt Date: 20210420
  Transmission Date: 20210717
  Serious: Yes (Other)
  Sender: FDA-Public Use
  Company Number: AT-ASTRAZENECA-2021A296402

PATIENT
  Sex: Female

DRUGS (19)
  1. LYRICA [Suspect]
     Active Substance: PREGABALIN
     Dosage: 75.0MG UNKNOWN
     Route: 065
     Dates: start: 20210121, end: 20210127
  2. LYRICA [Suspect]
     Active Substance: PREGABALIN
     Dosage: 600.0MG UNKNOWN
     Route: 065
     Dates: start: 20210219
  3. SPRAVATO [Suspect]
     Active Substance: ESKETAMINE
     Dosage: 28.0MG UNKNOWN
     Route: 065
     Dates: start: 20210126, end: 20210126
  4. LYRICA [Suspect]
     Active Substance: PREGABALIN
     Dosage: 200.0MG UNKNOWN
     Route: 065
     Dates: start: 20210131, end: 20210204
  5. LYRICA [Suspect]
     Active Substance: PREGABALIN
     Dosage: 300.0MG UNKNOWN
     Route: 065
     Dates: start: 20210205, end: 20210208
  6. SPRAVATO [Suspect]
     Active Substance: ESKETAMINE
     Dosage: 56.0MG UNKNOWN
     Route: 065
     Dates: start: 20210211, end: 20210211
  7. SPRAVATO [Suspect]
     Active Substance: ESKETAMINE
     Dosage: 56.0MG UNKNOWN
     Route: 065
     Dates: start: 20210209
  8. LYRICA [Suspect]
     Active Substance: PREGABALIN
     Dosage: 25.0MG UNKNOWN
     Route: 065
     Dates: start: 20210119, end: 20210120
  9. MIRTAZAPIN [Suspect]
     Active Substance: MIRTAZAPINE
     Dosage: 45.0MG UNKNOWN
     Route: 065
     Dates: start: 202102
  10. VENLAFAXINE [Concomitant]
     Active Substance: VENLAFAXINE HYDROCHLORIDE
     Route: 065
     Dates: start: 20210108, end: 20210114
  11. SPRAVATO [Suspect]
     Active Substance: ESKETAMINE
     Dosage: 28.0MG UNKNOWN
     Route: 065
     Dates: start: 20210126, end: 20210126
  12. SPRAVATO [Suspect]
     Active Substance: ESKETAMINE
     Dosage: 56.0MG UNKNOWN
     Route: 065
     Dates: start: 20210128, end: 20210128
  13. SPRAVATO [Suspect]
     Active Substance: ESKETAMINE
     Dosage: 56.0MG UNKNOWN
     Route: 065
     Dates: start: 20210205, end: 20210205
  14. SEROQUEL [Suspect]
     Active Substance: QUETIAPINE FUMARATE
     Indication: PRODUCT USED FOR UNKNOWN INDICATION
     Dosage: 300.0MG UNKNOWN
     Route: 048
     Dates: start: 20210118, end: 202102
  15. LYRICA [Suspect]
     Active Substance: PREGABALIN
     Dosage: 125.0MG UNKNOWN
     Route: 065
     Dates: start: 20210128, end: 20210130
  16. LYRICA [Suspect]
     Active Substance: PREGABALIN
     Dosage: 400.0MG UNKNOWN
     Route: 065
     Dates: start: 20210209, end: 20210218
  17. SPRAVATO [Suspect]
     Active Substance: ESKETAMINE
     Dosage: 56.0MG UNKNOWN
     Route: 065
     Dates: start: 20210203, end: 20210203
  18. SPRAVATO [Suspect]
     Active Substance: ESKETAMINE
     Dosage: 56.0MG UNKNOWN
     Route: 065
     Dates: start: 20210223, end: 20210223
  19. SPRAVATO [Suspect]
     Active Substance: ESKETAMINE
     Dosage: 28.0MG UNKNOWN
     Route: 065
     Dates: start: 20210121

REACTIONS (2)
  - Dissociation [Recovered/Resolved]
  - Panic attack [Recovered/Resolved]

NARRATIVE: CASE EVENT DATE: 20210223
